FAERS Safety Report 8904268 (Version 2)
Quarter: 2013Q1

REPORT INFORMATION
  Report Type: Spontaneous
  Country: DE (occurrence: DE)
  Receive Date: 20121113
  Receipt Date: 20130102
  Transmission Date: 20140127
  Serious: Yes (Hospitalization)
  Sender: FDA-Public Use
  Company Number: PHHY2012DE102992

PATIENT
  Sex: Male
  Weight: 67.4 kg

DRUGS (5)
  1. TOBI PODHALER [Suspect]
     Indication: CYSTIC FIBROSIS
     Dosage: 4 DF, BID
     Dates: start: 20120625, end: 20120627
  2. PULMOZYME [Concomitant]
     Indication: CYSTIC FIBROSIS
     Dosage: 1 DF, QD
  3. UDC [Concomitant]
     Indication: CYSTIC FIBROSIS
     Dosage: 1 DF, TID
     Route: 048
  4. AZITHROMYCIN [Concomitant]
     Indication: CYSTIC FIBROSIS
     Dosage: 3 TIMES A WEEK
  5. SALBUTAMOL [Concomitant]
     Indication: CYSTIC FIBROSIS
     Dosage: 1 DF, BID

REACTIONS (3)
  - Bronchial obstruction [Recovered/Resolved]
  - Oxygen saturation decreased [Recovered/Resolved]
  - Pulmonary function test abnormal [Unknown]
